FAERS Safety Report 8791126 (Version 1)
Quarter: 2012Q4

REPORT INFORMATION
  Report Type: Spontaneous
  Country: US (occurrence: None)
  Receive Date: 20120914
  Receipt Date: 20120914
  Transmission Date: 20130627
  Serious: Yes (Death)
  Sender: FDA-Public Use
  Company Number: None

PATIENT
  Sex: Female

DRUGS (1)
  1. ENBREL 50 MG [Suspect]
     Route: 058
     Dates: start: 20120727, end: 20120820

REACTIONS (3)
  - Headache [None]
  - Injection site swelling [None]
  - Injection site erythema [None]
